FAERS Safety Report 13540588 (Version 1)
Quarter: 2017Q2

REPORT INFORMATION
  Report Type: Spontaneous
  Country: US (occurrence: US)
  Receive Date: 20170512
  Receipt Date: 20170512
  Transmission Date: 20170830
  Serious: No
  Sender: FDA-Public Use
  Company Number: US-G+W LABS-GW2017US000104

PATIENT

DRUGS (2)
  1. GENTAMICIN SULFATE. [Suspect]
     Active Substance: GENTAMICIN SULFATE
     Dosage: UNK
  2. GENTAMICIN SULFATE. [Suspect]
     Active Substance: GENTAMICIN SULFATE
     Indication: INFECTION PROPHYLAXIS
     Dosage: 0.1 %, BID
     Route: 061
     Dates: start: 201609, end: 20170315

REACTIONS (1)
  - Catheter site pain [Recovered/Resolved]

NARRATIVE: CASE EVENT DATE: 201703
